FAERS Safety Report 19515025 (Version 3)
Quarter: 2021Q3

REPORT INFORMATION
  Report Type: Spontaneous
  Country: US (occurrence: US)
  Receive Date: 20210709
  Receipt Date: 20210915
  Transmission Date: 20211014
  Serious: Yes (Other)
  Sender: FDA-Public Use
  Company Number: US-SA-2021SA216347

PATIENT
  Age: 3 Year
  Sex: Male

DRUGS (1)
  1. LANTUS [Suspect]
     Active Substance: INSULIN GLARGINE
     Indication: TYPE 1 DIABETES MELLITUS
     Dosage: 4 IU, QD
     Route: 065
     Dates: start: 20210616

REACTIONS (2)
  - Diabetes mellitus inadequate control [Unknown]
  - Device operational issue [Unknown]

NARRATIVE: CASE EVENT DATE: 202106
